FAERS Safety Report 21099966 (Version 2)
Quarter: 2022Q3

REPORT INFORMATION
  Report Type: Report from Study
  Country: CA (occurrence: CA)
  Receive Date: 20220719
  Receipt Date: 20220801
  Transmission Date: 20221027
  Serious: Yes (Other)
  Sender: FDA-Public Use
  Company Number: CA-NOVARTISPH-NVSC2022CA158699

PATIENT
  Age: 32 Year
  Sex: Female

DRUGS (11)
  1. MONTELUKAST [Suspect]
     Active Substance: MONTELUKAST SODIUM
     Indication: Asthma
     Dosage: 10 MG, QD
     Route: 048
     Dates: start: 2018
  2. PANTOPRAZOLE [Concomitant]
     Active Substance: PANTOPRAZOLE
     Indication: Asthma
     Dosage: 1 DOSAGE FORM, BID
     Route: 048
     Dates: start: 2016
  3. ZANTAC [Concomitant]
     Active Substance: RANITIDINE HYDROCHLORIDE
     Indication: Asthma
     Dosage: 1 DOSAGE FORM, BID
     Route: 048
     Dates: start: 2018
  4. CLARITIN [Concomitant]
     Active Substance: LORATADINE
     Indication: Asthma
     Dosage: 1 DOSAGE FORM, QD
     Route: 048
     Dates: start: 2018
  5. VENTOLIN [Concomitant]
     Active Substance: ALBUTEROL SULFATE
     Indication: Asthma
     Dosage: 1 DOSAGE FORM, QD (STRENGTH: 1 (2.5) ML)
     Route: 055
  6. LAMOTRIGINE [Concomitant]
     Active Substance: LAMOTRIGINE
     Indication: Migraine
     Dosage: 1 DOSAGE FORM, QD
     Route: 048
  7. BACLOFEN [Concomitant]
     Active Substance: BACLOFEN
     Indication: Muscle relaxant therapy
     Dosage: 2 DOSAGE FORM, TID
     Route: 048
     Dates: start: 2016
  8. EPIPEN [Concomitant]
     Active Substance: EPINEPHRINE
     Indication: Anaphylactic reaction
     Dosage: 1 DOSAGE FORM, PRN
     Route: 030
     Dates: start: 2017
  9. GABAPENTIN [Concomitant]
     Active Substance: GABAPENTIN
     Indication: Joint dislocation
     Dosage: 1 DOSAGE FORM, BID
     Route: 048
     Dates: start: 2017
  10. CELEBREX [Concomitant]
     Active Substance: CELECOXIB
     Indication: Pain management
     Dosage: 1 DOSAGE FORM, QD
     Route: 048
     Dates: start: 2017
  11. PULMICORT TURBUHALER [Concomitant]
     Active Substance: BUDESONIDE
     Indication: Product used for unknown indication
     Dosage: UNK
     Route: 065
     Dates: start: 2019

REACTIONS (10)
  - Forced expiratory volume decreased [Unknown]
  - Reversible airways obstruction [Unknown]
  - Laryngospasm [Unknown]
  - Forced vital capacity decreased [Unknown]
  - Oropharyngeal discomfort [Unknown]
  - Dyspnoea [Unknown]
  - Total lung capacity decreased [Unknown]
  - Inspiratory capacity decreased [Unknown]
  - Fatigue [Unknown]
  - Asthma [Unknown]

NARRATIVE: CASE EVENT DATE: 20220518
